FAERS Safety Report 16462205 (Version 5)
Quarter: 2020Q1

REPORT INFORMATION
  Report Type: Spontaneous
  Country: US (occurrence: US)
  Receive Date: 20190621
  Receipt Date: 20200121
  Transmission Date: 20200409
  Serious: Yes (Other)
  Sender: FDA-Public Use
  Company Number: US-ASTRAZENECA-2019SE09297

PATIENT
  Age: 53 Year
  Sex: Female

DRUGS (78)
  1. PREVACID [Suspect]
     Active Substance: LANSOPRAZOLE
     Indication: GASTROOESOPHAGEAL REFLUX DISEASE
     Dosage: FOR VARIOUS DATES AND YEARS
     Route: 065
  2. LOSARTAN. [Concomitant]
     Active Substance: LOSARTAN
     Indication: BLOOD PRESSURE MEASUREMENT
     Route: 065
     Dates: start: 2010, end: 2011
  3. SIMVASTATIN. [Concomitant]
     Active Substance: SIMVASTATIN
     Indication: CARDIAC DISORDER
     Route: 065
     Dates: start: 2010
  4. ABATACEPT [Concomitant]
     Active Substance: ABATACEPT
  5. BUDESONIDE-FORMOTEROL [Concomitant]
     Active Substance: BUDESONIDE\FORMOTEROL
  6. FUROSEMIDE. [Concomitant]
     Active Substance: FUROSEMIDE
  7. LANTHANUM [Concomitant]
     Active Substance: LANTHANUM
  8. CALCIUM ACETATE. [Concomitant]
     Active Substance: CALCIUM ACETATE
  9. ESCITALOPRAM [Concomitant]
     Active Substance: ESCITALOPRAM OXALATE
  10. COZAAR [Concomitant]
     Active Substance: LOSARTAN POTASSIUM
  11. NEXIUM [Suspect]
     Active Substance: ESOMEPRAZOLE MAGNESIUM
     Indication: GASTROOESOPHAGEAL REFLUX DISEASE
     Dosage: 40.0MG UNKNOWN
     Route: 048
     Dates: start: 2010, end: 2014
  12. PRILOSEC [Suspect]
     Active Substance: OMEPRAZOLE MAGNESIUM
     Indication: GASTROOESOPHAGEAL REFLUX DISEASE
     Dosage: 40.0MG UNKNOWN
     Route: 048
     Dates: start: 2011, end: 2012
  13. PREVACID [Suspect]
     Active Substance: LANSOPRAZOLE
     Indication: GASTROOESOPHAGEAL REFLUX DISEASE
     Route: 065
     Dates: start: 2010, end: 2014
  14. VITAMIN D [Concomitant]
     Active Substance: VITAMIN D NOS
     Indication: PRODUCT COMMUNICATION ISSUE
     Route: 065
     Dates: start: 2011
  15. CRESTOR [Concomitant]
     Active Substance: ROSUVASTATIN CALCIUM
     Indication: CARDIAC DISORDER
     Route: 065
     Dates: start: 2010, end: 2011
  16. LISINOPRIL. [Concomitant]
     Active Substance: LISINOPRIL
     Indication: CARDIAC FAILURE
     Route: 065
     Dates: start: 2009
  17. HYDROCHLOROTHIAZIDE. [Concomitant]
     Active Substance: HYDROCHLOROTHIAZIDE
     Indication: BLOOD PRESSURE MEASUREMENT
     Route: 065
     Dates: start: 2009
  18. HEPARIN [Concomitant]
     Active Substance: HEPARIN SODIUM
     Indication: BLOOD PRESSURE MEASUREMENT
     Route: 065
     Dates: start: 2010, end: 2011
  19. PERCOCET [Concomitant]
     Active Substance: ACETAMINOPHEN\OXYCODONE HYDROCHLORIDE
  20. VITAMIN E [Concomitant]
     Active Substance: .ALPHA.-TOCOPHEROL
  21. CALCITRIOL. [Concomitant]
     Active Substance: CALCITRIOL
  22. NEXIUM [Suspect]
     Active Substance: ESOMEPRAZOLE MAGNESIUM
     Indication: GASTROOESOPHAGEAL REFLUX DISEASE
     Dosage: FOR VARIOUS DATES AND YEARS 40.0MG UNKNOWN
     Route: 048
  23. PRILOSEC [Suspect]
     Active Substance: OMEPRAZOLE MAGNESIUM
     Indication: GASTROOESOPHAGEAL REFLUX DISEASE
     Dosage: 40.0MG UNKNOWN
     Route: 048
     Dates: start: 2010, end: 2014
  24. CITALOPRAM [Concomitant]
     Active Substance: CITALOPRAM HYDROBROMIDE
     Indication: DEPRESSION
     Route: 065
     Dates: start: 2010
  25. DOXERCALCIFEROL. [Concomitant]
     Active Substance: DOXERCALCIFEROL
  26. TROPONIN [Concomitant]
  27. LEVAQUIN [Concomitant]
     Active Substance: LEVOFLOXACIN
  28. HYDROCODON/ ACETAMINOPHEN [Concomitant]
     Indication: PAIN
     Route: 065
     Dates: start: 2009, end: 2011
  29. CARVEDILOL. [Concomitant]
     Active Substance: CARVEDILOL
     Indication: BLOOD PRESSURE MEASUREMENT
     Route: 065
     Dates: start: 2011
  30. ALPRAZOLAM. [Concomitant]
     Active Substance: ALPRAZOLAM
     Indication: ANXIETY
     Route: 065
     Dates: start: 2009, end: 2011
  31. RANITIDINE. [Concomitant]
     Active Substance: RANITIDINE
     Dosage: GENERIC
     Route: 065
     Dates: start: 2018
  32. VOLTAREN [Concomitant]
     Active Substance: DICLOFENAC SODIUM
  33. INCRUSE ELLIPTA [Concomitant]
     Active Substance: UMECLIDINIUM BROMIDE
  34. CARAFATE [Concomitant]
     Active Substance: SUCRALFATE
  35. SINGULAIR [Concomitant]
     Active Substance: MONTELUKAST SODIUM
  36. PROTONIX [Suspect]
     Active Substance: PANTOPRAZOLE SODIUM
     Indication: GASTROOESOPHAGEAL REFLUX DISEASE
     Route: 065
     Dates: start: 2010, end: 2014
  37. PROPOXYPHENE. [Concomitant]
     Active Substance: PROPOXYPHENE
     Indication: PAIN
     Route: 065
     Dates: start: 2009, end: 2010
  38. CLARITHROMYCIN. [Concomitant]
     Active Substance: CLARITHROMYCIN
     Indication: INFECTION
     Route: 065
     Dates: start: 2010
  39. OXYCODON [Concomitant]
     Active Substance: OXYCODONE
     Indication: PAIN
     Route: 065
     Dates: start: 2011
  40. OXYCONTIN [Concomitant]
     Active Substance: OXYCODONE HYDROCHLORIDE
     Indication: PAIN
     Route: 065
     Dates: start: 2010, end: 2011
  41. PRAVASTATIN. [Concomitant]
     Active Substance: PRAVASTATIN
     Indication: CARDIAC DISORDER
     Route: 065
     Dates: start: 2009
  42. TUSSIONEX PENNKINETIC [Concomitant]
     Active Substance: CHLORPHENIRAMINE\HYDROCODONE
     Indication: COUGH
     Route: 065
     Dates: start: 2009
  43. ONDANSETRON [Concomitant]
     Active Substance: ONDANSETRON
  44. PRILOCAINE [Concomitant]
     Active Substance: PRILOCAINE
  45. BUTRANS [Concomitant]
     Active Substance: BUPRENORPHINE
  46. SPIRIVA [Concomitant]
     Active Substance: TIOTROPIUM BROMIDE MONOHYDRATE
  47. PROTONIX [Suspect]
     Active Substance: PANTOPRAZOLE SODIUM
     Indication: GASTROOESOPHAGEAL REFLUX DISEASE
     Route: 065
     Dates: start: 201708
  48. BENZONATATE. [Concomitant]
     Active Substance: BENZONATATE
     Indication: COUGH
     Route: 065
     Dates: start: 2009
  49. PREDNISONE. [Concomitant]
     Active Substance: PREDNISONE
     Indication: ARTHRITIS
     Route: 065
     Dates: start: 2009, end: 2010
  50. CIPRO [Concomitant]
     Active Substance: CIPROFLOXACIN HYDROCHLORIDE
     Indication: INFECTION
     Route: 065
     Dates: start: 2009
  51. HYDROMORPHONE [Concomitant]
     Active Substance: HYDROMORPHONE
  52. AMLODIPINE [Concomitant]
     Active Substance: AMLODIPINE BESYLATE
  53. METHYLPREDNISOLON [Concomitant]
     Active Substance: METHYLPREDNISOLONE
  54. IPRATROPIUM [Concomitant]
     Active Substance: IPRATROPIUM
  55. TUDORZA [Concomitant]
     Active Substance: ACLIDINIUM BROMIDE
  56. BUSPIRONE [Concomitant]
     Active Substance: BUSPIRONE HYDROCHLORIDE
  57. PRILOSEC [Suspect]
     Active Substance: OMEPRAZOLE MAGNESIUM
     Indication: GASTROOESOPHAGEAL REFLUX DISEASE
     Dosage: GENERIC40.0MG UNKNOWN
     Route: 065
     Dates: start: 2010, end: 2014
  58. CHERATUSSIN [Concomitant]
     Active Substance: AMMONIUM CHLORIDE\DEXTROMETHORPHAN\SODIUM CITRATE
     Indication: NASOPHARYNGITIS
     Route: 065
     Dates: start: 2010
  59. AZITHROMYCIN ANHYDROUS. [Concomitant]
     Active Substance: AZITHROMYCIN ANHYDROUS
     Indication: INFECTION
     Route: 065
     Dates: start: 2009, end: 2011
  60. CARISOPRODOL. [Concomitant]
     Active Substance: CARISOPRODOL
     Indication: PAIN
     Route: 065
     Dates: start: 2009, end: 2010
  61. VERAPAMIL [Concomitant]
     Active Substance: VERAPAMIL HYDROCHLORIDE
     Indication: BLOOD PRESSURE MEASUREMENT
     Route: 065
     Dates: start: 2009, end: 2010
  62. ALBUTEROL. [Concomitant]
     Active Substance: ALBUTEROL
  63. CINACALCET. [Concomitant]
     Active Substance: CINACALCET
  64. PIPERACILLIN. [Concomitant]
     Active Substance: PIPERACILLIN SODIUM
  65. SENSIPAR [Concomitant]
     Active Substance: CINACALCET HYDROCHLORIDE
  66. TAPENTADOL HCL [Concomitant]
  67. LIDOCAINE. [Concomitant]
     Active Substance: LIDOCAINE
  68. PROCRIT [Concomitant]
     Active Substance: ERYTHROPOIETIN
  69. FLEXERIL [Concomitant]
     Active Substance: CYCLOBENZAPRINE HYDROCHLORIDE
  70. CYMBALTA [Concomitant]
     Active Substance: DULOXETINE HYDROCHLORIDE
  71. NEXIUM [Suspect]
     Active Substance: ESOMEPRAZOLE MAGNESIUM
     Indication: GASTROOESOPHAGEAL REFLUX DISEASE
     Dosage: 40.0MG UNKNOWN
     Route: 048
     Dates: start: 200811, end: 2014
  72. CEPHALEXIN. [Concomitant]
     Active Substance: CEPHALEXIN
     Indication: INFECTION
     Route: 065
     Dates: start: 2009
  73. FAMOTIDINE. [Concomitant]
     Active Substance: FAMOTIDINE
  74. GUAIFENESIN. [Concomitant]
     Active Substance: GUAIFENESIN
  75. ACTEMRA [Concomitant]
     Active Substance: TOCILIZUMAB
  76. LEXAPRO [Concomitant]
     Active Substance: ESCITALOPRAM OXALATE
  77. LYRICA [Concomitant]
     Active Substance: PREGABALIN
  78. BENTYL [Concomitant]
     Active Substance: DICYCLOMINE HYDROCHLORIDE

REACTIONS (9)
  - Renal failure [Unknown]
  - Renal injury [Unknown]
  - Secondary hyperthyroidism [Unknown]
  - Rebound acid hypersecretion [Unknown]
  - Acute kidney injury [Unknown]
  - Chronic kidney disease [Not Recovered/Not Resolved]
  - Nephrogenic anaemia [Unknown]
  - Chronic kidney disease-mineral and bone disorder [Unknown]
  - End stage renal disease [Not Recovered/Not Resolved]

NARRATIVE: CASE EVENT DATE: 2008
